FAERS Safety Report 24091442 (Version 1)
Quarter: 2024Q3

REPORT INFORMATION
  Report Type: Spontaneous
  Country: BR (occurrence: BR)
  Receive Date: 20240715
  Receipt Date: 20240715
  Transmission Date: 20241017
  Serious: Yes (Death)
  Sender: DAIICHI
  Company Number: BR-DSJP-DSE-2024-135400

PATIENT
  Age: 75 Year
  Sex: Male

DRUGS (2)
  1. ENHERTU [Suspect]
     Active Substance: FAM-TRASTUZUMAB DERUXTECAN-NXKI
     Indication: Lung adenocarcinoma
     Dosage: UNK
     Route: 065
     Dates: start: 202211
  2. ENHERTU [Suspect]
     Active Substance: FAM-TRASTUZUMAB DERUXTECAN-NXKI
     Dosage: C22
     Route: 065

REACTIONS (7)
  - Death [Fatal]
  - Mood altered [Unknown]
  - Blunted affect [Unknown]
  - Anhedonia [Unknown]
  - Depression [Unknown]
  - Malnutrition [Unknown]
  - Decreased appetite [Unknown]
